FAERS Safety Report 14145953 (Version 1)
Quarter: 2017Q4

REPORT INFORMATION
  Report Type: Spontaneous
  Country: US (occurrence: US)
  Receive Date: 20171031
  Receipt Date: 20171031
  Transmission Date: 20180321
  Serious: Yes (Other)
  Sender: FDA-Public Use
  Company Number: US-BRISTOL-MYERS SQUIBB COMPANY-BMS-2017-097020

PATIENT
  Age: 63 Year

DRUGS (1)
  1. ELIQUIS [Suspect]
     Active Substance: APIXABAN
     Indication: PULMONARY EMBOLISM
     Dosage: 10 MG, UNK
     Route: 065

REACTIONS (4)
  - Pyrexia [Unknown]
  - Lung infiltration [Recovering/Resolving]
  - Pleural effusion [Recovering/Resolving]
  - Acute respiratory failure [Recovering/Resolving]
